FAERS Safety Report 8613932-5 (Version None)
Quarter: 2012Q3

REPORT INFORMATION
  Report Type: 
  Country: None (occurrence: None)
  Receive Date: 20120823
  Receipt Date: 20120810
  Transmission Date: 20120928
  Serious: Yes (Hospitalization, Other)
  Sender: FDA-Public Use
  Company Number: JP-009507513-1207JPN003650

PATIENT

DRUGS (7)
  1. FLORINEF [Suspect]
     Dosage: 0.1 MG, QD
     Route: 048
  2. MENESIT TABLETS - 250 [Suspect]
     Indication: PARKINSON'S DISEASE
     Dosage: DAILY DOSAGE UNKNOWN
     Route: 048
  3. FUROSEMIDE [Concomitant]
     Dosage: DIVIDED DOSE FREQUENCY UNKNOWN
     Route: 048
  4. FP (SELEGILINE HYDROCHLORIDE) [Concomitant]
     Dosage: 2.5 MG, BID
     Route: 048
  5. METLIGINE [Concomitant]
     Dosage: 2 MG, TID
     Route: 048
  6. DOPS [Suspect]
     Dosage: 200 MG, TID
     Route: 048
  7. MOTILIUM [Suspect]
     Dosage: 10 MG, TID
     Route: 048

REACTIONS (4)
  - PLATELET COUNT DECREASED [None]
  - HAEMATURIA [None]
  - ORTHOSTATIC HYPOTENSION [None]
  - FEMUR FRACTURE [None]
